FAERS Safety Report 10332592 (Version 1)
Quarter: 2014Q3

REPORT INFORMATION
  Report Type: Spontaneous
  Country: JP (occurrence: JP)
  Receive Date: 20140722
  Receipt Date: 20140722
  Transmission Date: 20150326
  Serious: Yes (Disabling)
  Sender: FDA-Public Use
  Company Number: JP-VIIV HEALTHCARE LIMITED-B0998005A

PATIENT
  Age: 37 Year
  Sex: Male

DRUGS (15)
  1. TRUVADA [Concomitant]
     Active Substance: EMTRICITABINE\TENOFOVIR DISOPROXIL FUMARATE
     Indication: ACQUIRED IMMUNODEFICIENCY SYNDROME
     Dosage: 1IUAX PER DAY
     Route: 048
  2. ISENTRESS [Concomitant]
     Active Substance: RALTEGRAVIR POTASSIUM
     Route: 048
     Dates: end: 201404
  3. TRAMAL [Concomitant]
     Active Substance: TRAMADOL
     Indication: ARTHRALGIA
     Route: 048
  4. TIVICAY [Suspect]
     Active Substance: DOLUTEGRAVIR SODIUM
     Indication: ACQUIRED IMMUNODEFICIENCY SYNDROME
     Dosage: 50MG TWICE PER DAY
     Route: 048
     Dates: start: 20140424
  5. TRAZODONE [Concomitant]
     Active Substance: TRAZODONE HYDROCHLORIDE
     Dosage: 25MG PER DAY
     Route: 048
  6. SEROQUEL [Concomitant]
     Active Substance: QUETIAPINE FUMARATE
     Dosage: 100MG PER DAY
     Route: 048
  7. GABAPEN [Concomitant]
     Active Substance: GABAPENTIN
     Indication: ARTHRALGIA
     Route: 048
  8. GABALON [Concomitant]
     Active Substance: BACLOFEN
     Route: 048
  9. LEXIVA [Suspect]
     Active Substance: FOSAMPRENAVIR CALCIUM
     Indication: ACQUIRED IMMUNODEFICIENCY SYNDROME
     Route: 048
  10. DORAL [Concomitant]
     Active Substance: QUAZEPAM
     Dosage: 30MG PER DAY
     Route: 048
  11. DEPAKENE [Concomitant]
     Active Substance: VALPROIC ACID
     Route: 048
  12. LIMAS [Concomitant]
     Active Substance: LITHIUM CARBONATE
     Route: 048
  13. RISPERDAL [Concomitant]
     Active Substance: RISPERIDONE
     Route: 048
  14. TRAMCET [Concomitant]
     Active Substance: ACETAMINOPHEN\TRAMADOL
     Indication: ARTHRALGIA
     Route: 048
  15. TOPINA [Concomitant]
     Active Substance: TOPIRAMATE
     Route: 048

REACTIONS (3)
  - Somnolence [Recovering/Resolving]
  - Dizziness [Unknown]
  - Osteonecrosis [Unknown]

NARRATIVE: CASE EVENT DATE: 201404
